FAERS Safety Report 5681264-3 (Version None)
Quarter: 2008Q1

REPORT INFORMATION
  Report Type: 
  Country: None (occurrence: None)
  Receive Date: 20080326
  Receipt Date: 20070202
  Transmission Date: 20080703
  Serious: Yes (Hospitalization)
  Sender: FDA-Public Use
  Company Number: US-BAYER-US-2007-001028

PATIENT
  Age: 29 Year
  Sex: Female
  Weight: 75 kg

DRUGS (1)
  1. MIRENA [Suspect]
     Route: 015
     Dates: start: 20060918, end: 20061215

REACTIONS (3)
  - HAEMORRHAGIC OVARIAN CYST [None]
  - PELVIC INFLAMMATORY DISEASE [None]
  - SALPINGITIS [None]
